FAERS Safety Report 5118211-9 (Version None)
Quarter: 2006Q4

REPORT INFORMATION
  Report Type: 
  Country: None (occurrence: None)
  Receive Date: 20061002
  Receipt Date: 20060522
  Transmission Date: 20070319
  Serious: No
  Sender: FDA-Public Use
  Company Number: US-BRISTOL-MYERS SQUIBB COMPANY-13384706

PATIENT
  Age: 77 Year
  Sex: Female
  Weight: 71 kg

DRUGS (13)
  1. ORENCIA [Suspect]
     Indication: RHEUMATOID ARTHRITIS
     Dosage: DOSAGE FORM = 3 VIALS
     Route: 042
     Dates: start: 20060424, end: 20060508
  2. CELEBREX [Concomitant]
  3. TRAZODONE HCL [Concomitant]
  4. SYNTHROID [Concomitant]
  5. XALATAN [Concomitant]
  6. MULTI-VITAMIN [Concomitant]
  7. CALCIUM GLUCONATE [Concomitant]
  8. BIOTIN [Concomitant]
  9. CORTISONE ACETATE [Concomitant]
  10. PRILOSEC [Concomitant]
  11. PERCOCET [Concomitant]
  12. LASIX [Concomitant]
  13. POTASSIUM [Concomitant]

REACTIONS (2)
  - LYMPHADENOPATHY [None]
  - ORAL CANDIDIASIS [None]
